FAERS Safety Report 12165905 (Version 7)
Quarter: 2018Q4

REPORT INFORMATION
  Report Type: Spontaneous
  Country: FR (occurrence: FR)
  Receive Date: 20160309
  Receipt Date: 20181009
  Transmission Date: 20190204
  Serious: Yes (Hospitalization, Congenital Anomaly, Other)
  Sender: FDA-Public Use
  Company Number: FR-ABBVIE-15P-056-1486737-00

PATIENT
  Sex: Male

DRUGS (2)
  1. DEPAKINE CHRONO [Suspect]
     Active Substance: VALPROATE SODIUM
     Indication: MATERNAL EXPOSURE TIMING UNSPECIFIED
     Route: 064
  2. DEPAKINE [Suspect]
     Active Substance: VALPROATE SODIUM
     Indication: MATERNAL EXPOSURE TIMING UNSPECIFIED
     Route: 064

REACTIONS (32)
  - Dysmorphism [Unknown]
  - Daydreaming [Unknown]
  - Disturbance in attention [Unknown]
  - Scoliosis [Not Recovered/Not Resolved]
  - Foetal exposure during pregnancy [Unknown]
  - Foetal anticonvulsant syndrome [Unknown]
  - Learning disorder [Unknown]
  - Educational problem [Unknown]
  - Attention deficit/hyperactivity disorder [Not Recovered/Not Resolved]
  - Hippocampal sclerosis [Not Recovered/Not Resolved]
  - Fatigue [Unknown]
  - Congenital anomaly [Unknown]
  - Autism spectrum disorder [Not Recovered/Not Resolved]
  - Ill-defined disorder [Unknown]
  - Speech disorder [Unknown]
  - Sleep disorder [Not Recovered/Not Resolved]
  - Skin disorder [Unknown]
  - Hypermobility syndrome [Not Recovered/Not Resolved]
  - Skin atrophy [Not Recovered/Not Resolved]
  - Fall [Unknown]
  - Hyperacusis [Unknown]
  - Paraesthesia [Unknown]
  - Bronchitis [Unknown]
  - Wrist fracture [Unknown]
  - Hand fracture [Unknown]
  - Respiratory disorder [Not Recovered/Not Resolved]
  - Primary ciliary dyskinesia [Not Recovered/Not Resolved]
  - Gastrooesophageal reflux disease [Unknown]
  - Bronchiolitis [Unknown]
  - Carcinoid tumour [Unknown]
  - Salivary hypersecretion [Unknown]
  - Amnesia [Unknown]

NARRATIVE: CASE EVENT DATE: 199909
